FAERS Safety Report 22529831 (Version 13)
Quarter: 2024Q3

REPORT INFORMATION
  Report Type: Report from Study
  Country: CA (occurrence: CA)
  Receive Date: 20230607
  Receipt Date: 20240710
  Transmission Date: 20241017
  Serious: Yes (Hospitalization, Other)
  Sender: GLAXOSMITHKLINE
  Company Number: CA-GLAXOSMITHKLINE-CA2023AMR076638

PATIENT

DRUGS (22)
  1. MEPOLIZUMAB [Suspect]
     Active Substance: MEPOLIZUMAB
     Indication: Asthma
     Dosage: 100 MG, Q4W
     Route: 058
     Dates: start: 20220217
  2. MEPOLIZUMAB [Suspect]
     Active Substance: MEPOLIZUMAB
     Indication: Asthma
     Dosage: 100 MG, Q4W
     Route: 058
  3. MEPOLIZUMAB [Suspect]
     Active Substance: MEPOLIZUMAB
     Indication: Asthma
     Dosage: 100 MG, Q4W
     Route: 058
  4. MEPOLIZUMAB [Suspect]
     Active Substance: MEPOLIZUMAB
     Indication: Asthma
     Dosage: 100 MG, Q4W
     Route: 058
  5. MEPOLIZUMAB [Suspect]
     Active Substance: MEPOLIZUMAB
     Indication: Asthma
     Dosage: 100 MG, Q4W
     Route: 058
  6. MEPOLIZUMAB [Suspect]
     Active Substance: MEPOLIZUMAB
     Indication: Asthma
     Dosage: 100 MG, Q4W
     Route: 058
  7. MEPOLIZUMAB [Suspect]
     Active Substance: MEPOLIZUMAB
     Indication: Asthma
     Dosage: 100 MG, Q4W
     Route: 058
  8. MEPOLIZUMAB [Suspect]
     Active Substance: MEPOLIZUMAB
     Indication: Asthma
     Dosage: 100 MG, Q4W
     Route: 058
  9. MEPOLIZUMAB [Suspect]
     Active Substance: MEPOLIZUMAB
     Indication: Asthma
     Dosage: 100 MG, Q4W
     Route: 058
  10. CORTISONE [Suspect]
     Active Substance: CORTISONE
     Indication: Dyspnoea
     Dosage: UNK
     Dates: start: 20230515, end: 20240101
  11. CORTISONE [Suspect]
     Active Substance: CORTISONE
     Indication: Bronchospasm
     Dosage: 50 MG
     Route: 048
     Dates: start: 20240207
  12. CORTISONE [Suspect]
     Active Substance: CORTISONE
     Dosage: 7.5 MG, QD
     Route: 048
  13. ZENHALE [Concomitant]
     Active Substance: FORMOTEROL FUMARATE\MOMETASONE FUROATE
     Indication: Product used for unknown indication
     Dosage: 2 PUFF(S), BID, 200/5 MCG
  14. SPIRIVA RESPIMAT [Concomitant]
     Active Substance: TIOTROPIUM BROMIDE
     Indication: Product used for unknown indication
     Dosage: 1 PUFF(S), QD 18 MCG 1 INH DAILYY
     Route: 055
  15. SPIRIVA RESPIMAT [Concomitant]
     Active Substance: TIOTROPIUM BROMIDE
     Dosage: 2 PUFF(S), 2.5MCG
     Route: 055
  16. SINGULAIR [Concomitant]
     Active Substance: MONTELUKAST SODIUM
     Indication: Product used for unknown indication
     Dosage: 10 MG, QD
     Route: 048
  17. SPIRIVA [Concomitant]
     Active Substance: TIOTROPIUM BROMIDE MONOHYDRATE
     Indication: Product used for unknown indication
     Dosage: 2.5MCG, 2 INH DIE
  18. LEVOFLOXACIN [Concomitant]
     Active Substance: LEVOFLOXACIN
     Indication: Product used for unknown indication
     Dosage: 500 MG
     Dates: end: 20220404
  19. AVELOX [Concomitant]
     Active Substance: MOXIFLOXACIN HYDROCHLORIDE
     Indication: Product used for unknown indication
     Dosage: UNK
  20. DOXYCYCLINE [Concomitant]
     Active Substance: DOXYCYCLINE\DOXYCYCLINE HYCLATE
     Indication: Product used for unknown indication
     Dosage: 100 MG, BID FOR 5DAYS
     Route: 048
  21. TRELEGY ELLIPTA [Concomitant]
     Active Substance: FLUTICASONE FUROATE\UMECLIDINIUM BROMIDE\VILANTEROL TRIFENATATE
     Indication: Product used for unknown indication
     Dosage: UNK
  22. ARNUITY ELLIPTA [Concomitant]
     Active Substance: FLUTICASONE FUROATE
     Indication: Product used for unknown indication
     Dosage: UNK

REACTIONS (51)
  - Bronchospasm [Unknown]
  - Phlebitis [Unknown]
  - Pneumonia [Unknown]
  - Respiratory distress [Unknown]
  - Polypectomy [Unknown]
  - Asphyxia [Not Recovered/Not Resolved]
  - Deafness [Unknown]
  - Back pain [Unknown]
  - Dyspnoea [Not Recovered/Not Resolved]
  - Wheezing [Not Recovered/Not Resolved]
  - Stridor [Not Recovered/Not Resolved]
  - Seasonal allergy [Not Recovered/Not Resolved]
  - Loss of personal independence in daily activities [Unknown]
  - Respiratory disorder [Unknown]
  - Fatigue [Unknown]
  - Blood pressure decreased [Unknown]
  - Asthma [Unknown]
  - Musculoskeletal discomfort [Unknown]
  - Abdominal pain [Unknown]
  - Diarrhoea [Unknown]
  - Disease recurrence [Unknown]
  - Pain [Unknown]
  - Secretion discharge [Unknown]
  - Sense of oppression [Unknown]
  - Insomnia [Unknown]
  - Rales [Unknown]
  - Oxygen saturation abnormal [Unknown]
  - COVID-19 [Unknown]
  - Cough [Unknown]
  - Productive cough [Unknown]
  - Bronchitis chronic [Unknown]
  - Breast mass [Unknown]
  - Hypercholesterolaemia [Unknown]
  - Anxiety [Unknown]
  - Frustration tolerance decreased [Unknown]
  - Sputum discoloured [Unknown]
  - Erythema [Unknown]
  - Feeling hot [Unknown]
  - Malaise [Unknown]
  - Pulmonary pain [Unknown]
  - Abdominal pain upper [Unknown]
  - Blood pressure increased [Unknown]
  - Cushingoid [Unknown]
  - Breath sounds abnormal [Unknown]
  - Hot flush [Unknown]
  - Eye oedema [Unknown]
  - Eye pruritus [Unknown]
  - Rhinorrhoea [Unknown]
  - Sneezing [Unknown]
  - Rhinitis allergic [Unknown]
  - Therapy cessation [Unknown]

NARRATIVE: CASE EVENT DATE: 20230402
